FAERS Safety Report 13835273 (Version 1)
Quarter: 2017Q3

REPORT INFORMATION
  Report Type: Spontaneous
  Country: US (occurrence: US)
  Receive Date: 20170804
  Receipt Date: 20170804
  Transmission Date: 20171127
  Serious: Yes (Other)
  Sender: FDA-Public Use
  Company Number: US-VIFOR (INTERNATIONAL) INC.-VIT-2017-00915

PATIENT
  Age: 71 Year
  Sex: Male
  Weight: 68.5 kg

DRUGS (6)
  1. CARVEDILOL. [Concomitant]
     Active Substance: CARVEDILOL
  2. VELTASSA [Suspect]
     Active Substance: PATIROMER
     Indication: HYPERKALAEMIA
     Route: 065
     Dates: start: 20161220
  3. HYDRALAZINE [Concomitant]
     Active Substance: HYDRALAZINE HYDROCHLORIDE
  4. GLUCAGON. [Concomitant]
     Active Substance: GLUCAGON
  5. NORVASC [Concomitant]
     Active Substance: AMLODIPINE BESYLATE
  6. EPOGEN [Concomitant]
     Active Substance: ERYTHROPOIETIN

REACTIONS (3)
  - Inappropriate schedule of drug administration [Unknown]
  - Chronic kidney disease [Recovering/Resolving]
  - Blood potassium increased [Recovering/Resolving]

NARRATIVE: CASE EVENT DATE: 20161220
